FAERS Safety Report 9169627 (Version 1)
Quarter: 2013Q1

REPORT INFORMATION
  Report Type: Spontaneous
  Country: US (occurrence: US)
  Receive Date: 20130318
  Receipt Date: 20130318
  Transmission Date: 20140127
  Serious: No
  Sender: FDA-Public Use
  Company Number: US-BAYER-2013-032575

PATIENT
  Sex: Female

DRUGS (2)
  1. FINACEA [Suspect]
     Indication: ROSACEA
     Dosage: UNK
     Route: 061
  2. METROGEL [Suspect]
     Indication: ROSACEA
     Dosage: UNK
     Route: 061

REACTIONS (1)
  - Drug ineffective [None]
